FAERS Safety Report 9610444 (Version 1)
Quarter: 2013Q4

REPORT INFORMATION
  Report Type: Spontaneous
  Country: FR (occurrence: FR)
  Receive Date: 20131009
  Receipt Date: 20131009
  Transmission Date: 20140711
  Serious: Yes (Hospitalization, Other)
  Sender: FDA-Public Use
  Company Number: FR-PFIZER INC-2013280617

PATIENT
  Age: 5 Year
  Sex: Female

DRUGS (3)
  1. SOLU-MEDROL [Suspect]
     Indication: MALIGNANT HISTIOCYTOSIS
     Dosage: TWICE DAILY FOR 5 DAYS, EVERY 3 WEEKS
     Route: 042
     Dates: start: 2012
  2. VELBE [Suspect]
     Indication: MALIGNANT HISTIOCYTOSIS
     Dosage: 10 MG, EVERY 3 WEEKS
     Route: 041
     Dates: start: 2012
  3. PURINETHOL [Suspect]
     Indication: MALIGNANT HISTIOCYTOSIS
     Dosage: 50 MG, 1X/DAY
     Route: 048
     Dates: start: 2012

REACTIONS (2)
  - Palmoplantar keratoderma [Not Recovered/Not Resolved]
  - Intracardiac thrombus [Recovered/Resolved]
